FAERS Safety Report 25005702 (Version 1)
Quarter: 2025Q1

REPORT INFORMATION
  Report Type: Spontaneous
  Country: US (occurrence: None)
  Receive Date: 20250224
  Receipt Date: 20250224
  Transmission Date: 20250409
  Serious: Yes (Life-Threatening, Hospitalization, Disabling)
  Sender: FDA-CTU
  Company Number: None

PATIENT
  Age: 64 Year
  Sex: Male
  Weight: 77.8 kg

DRUGS (1)
  1. HUMIRA [Suspect]
     Active Substance: ADALIMUMAB
     Indication: Psoriatic arthropathy
     Dates: start: 20241104, end: 20250109

REACTIONS (6)
  - Histoplasmosis [None]
  - Nocardiosis [None]
  - Pneumonia [None]
  - Abdominal infection [None]
  - Central nervous system bacterial infection [None]
  - Infection in an immunocompromised host [None]

NARRATIVE: CASE EVENT DATE: 20250109
